FAERS Safety Report 8584877-4 (Version None)
Quarter: 2012Q3

REPORT INFORMATION
  Report Type: 
  Country: None (occurrence: None)
  Receive Date: 20120810
  Receipt Date: 20120727
  Transmission Date: 20120928
  Serious: Yes (Other)
  Sender: FDA-Public Use
  Company Number: IT-ELI_LILLY_AND_COMPANY-IT201008006145

PATIENT
  Sex: Female

DRUGS (3)
  1. PROZAC [Suspect]
     Indication: WEIGHT LOSS DIET
     Dosage: 30 MG, QD
     Route: 048
     Dates: start: 20100701, end: 20100714
  2. PSEUDOEPHEDRINE HCL [Concomitant]
     Indication: WEIGHT LOSS DIET
     Dosage: 50 MG, QD
     Route: 048
     Dates: start: 20100701, end: 20100714
  3. CLORAZEPATE DIPOTASSIUM [Concomitant]
     Indication: WEIGHT LOSS DIET
     Dosage: 5 MG, QD
     Route: 048
     Dates: start: 20100701, end: 20100714

REACTIONS (4)
  - STRESS [None]
  - OFF LABEL USE [None]
  - CRANIOCEREBRAL INJURY [None]
  - FALL [None]
